FAERS Safety Report 8154599-2 (Version None)
Quarter: 2012Q1

REPORT INFORMATION
  Report Type: 
  Country: None (occurrence: None)
  Receive Date: 20120221
  Receipt Date: 20120208
  Transmission Date: 20120608
  Serious: Yes (Other)
  Sender: FDA-Public Use
  Company Number: DZ-ROCHE-1038567

PATIENT
  Sex: Female

DRUGS (2)
  1. TAXOL [Suspect]
     Indication: BREAST CANCER
     Route: 065
     Dates: start: 20111201, end: 20120205
  2. AVASTIN [Suspect]
     Indication: BREAST CANCER
     Route: 065
     Dates: start: 20111201, end: 20120205

REACTIONS (2)
  - RASH PAPULAR [None]
  - PRURIGO [None]
